FAERS Safety Report 4898380-6 (Version None)
Quarter: 2006Q1

REPORT INFORMATION
  Report Type: 
  Country: None (occurrence: None)
  Receive Date: 20060202
  Receipt Date: 20060130
  Transmission Date: 20060701
  Serious: Yes (Hospitalization, Disabling)
  Sender: FDA-Public Use
  Company Number: PHEH2006US01469

PATIENT
  Sex: Female

DRUGS (1)
  1. LAMISIL [Suspect]
     Indication: NAIL TINEA
     Dosage: 250 MG, QD
     Route: 048
     Dates: start: 20040115, end: 20040121

REACTIONS (15)
  - ANXIETY [None]
  - ASTHENIA [None]
  - AZOTAEMIA [None]
  - CATHETER PLACEMENT [None]
  - CONFUSIONAL STATE [None]
  - DIALYSIS [None]
  - ECCHYMOSIS [None]
  - EMOTIONAL DISTRESS [None]
  - NAUSEA [None]
  - OEDEMA PERIPHERAL [None]
  - PAIN [None]
  - PLASMAPHERESIS [None]
  - RENAL FAILURE ACUTE [None]
  - THROMBOTIC THROMBOCYTOPENIC PURPURA [None]
  - VOMITING [None]
